FAERS Safety Report 11074405 (Version 4)
Quarter: 2015Q3

REPORT INFORMATION
  Report Type: Report from Study
  Country: US (occurrence: US)
  Receive Date: 20150429
  Receipt Date: 20150818
  Transmission Date: 20151125
  Serious: Yes (Life-Threatening)
  Sender: FDA-Public Use
  Company Number: US-AMGEN-USASL2015039525

PATIENT
  Age: 58 Year
  Sex: Male

DRUGS (5)
  1. OTEZLA [Concomitant]
     Active Substance: APREMILAST
     Dosage: UNK
  2. PREDNISONE. [Concomitant]
     Active Substance: PREDNISONE
     Dosage: 5MG TWICE A DAY
     Dates: start: 20150518
  3. ENBREL [Suspect]
     Active Substance: ETANERCEPT
     Indication: PSORIATIC ARTHROPATHY
     Dosage: 50 MG, 2 TIMES/WK
     Route: 065
     Dates: start: 20150415, end: 20150808
  4. ENBREL [Suspect]
     Active Substance: ETANERCEPT
     Indication: PSORIASIS
  5. PREDNISONE. [Concomitant]
     Active Substance: PREDNISONE
     Dosage: 10MG TWICE A DAY

REACTIONS (5)
  - Hypersomnia [Not Recovered/Not Resolved]
  - Feeling cold [Not Recovered/Not Resolved]
  - Psoriasis [Unknown]
  - Body temperature abnormal [Recovered/Resolved]
  - Drug effect decreased [Unknown]

NARRATIVE: CASE EVENT DATE: 2015
